FAERS Safety Report 24006363 (Version 1)
Quarter: 2024Q2

REPORT INFORMATION
  Report Type: Spontaneous
  Country: US (occurrence: US)
  Receive Date: 20240624
  Receipt Date: 20240624
  Transmission Date: 20240716
  Serious: No
  Sender: FDA-Public Use
  Company Number: US-PAIPHARMA-2023-US-024768

PATIENT
  Age: 79 Year
  Sex: Female
  Weight: 40.82 kg

DRUGS (8)
  1. ALBUTEROL [Concomitant]
     Active Substance: ALBUTEROL
  2. DONEPEZIL [Concomitant]
     Active Substance: DONEPEZIL\DONEPEZIL HYDROCHLORIDE
  3. HALOPERIDOL [Concomitant]
     Active Substance: HALOPERIDOL
  4. MIRTAZAPINE [Concomitant]
     Active Substance: MIRTAZAPINE
  5. SERTRALINE [Concomitant]
     Active Substance: SERTRALINE HYDROCHLORIDE
  6. ACETAMINOPHEN [Concomitant]
     Active Substance: ACETAMINOPHEN
     Dosage: 500MG
  7. MORPHINE [Concomitant]
     Active Substance: MORPHINE
  8. LORAZEPAM [Suspect]
     Active Substance: LORAZEPAM
     Indication: Product use in unapproved indication
     Dosage: 1 EVERY MORNING
     Route: 048
     Dates: start: 20230711, end: 20230811

REACTIONS (3)
  - Headache [Unknown]
  - Confusional state [Unknown]
  - Product use in unapproved indication [Recovered/Resolved]

NARRATIVE: CASE EVENT DATE: 20230711
